FAERS Safety Report 16328300 (Version 1)
Quarter: 2019Q2

REPORT INFORMATION
  Report Type: Spontaneous
  Country: TR (occurrence: TR)
  Receive Date: 20190518
  Receipt Date: 20190518
  Transmission Date: 20190711
  Serious: Yes (Other)
  Sender: FDA-Public Use
  Company Number: TR-UCBSA-2019020950

PATIENT
  Sex: Male

DRUGS (11)
  1. LEVETIRACETAM. [Suspect]
     Active Substance: LEVETIRACETAM
     Indication: STATUS EPILEPTICUS
     Dosage: 1500 MG, UNK
     Route: 064
  2. PROPOFOL. [Suspect]
     Active Substance: PROPOFOL
     Indication: STATUS EPILEPTICUS
     Dosage: 1.7 MILLIGRAM/KILOGRAM, HOURLY
     Route: 064
  3. THIOPENTAL [Suspect]
     Active Substance: THIOPENTAL
     Indication: STATUS EPILEPTICUS
     Dosage: UP TO 1.5 MG/KG/H
     Route: 064
  4. LEVETIRACETAM. [Suspect]
     Active Substance: LEVETIRACETAM
     Indication: OFF LABEL USE
     Dosage: UP TO 2000 MG/D
     Route: 064
  5. LACOSAMIDE. [Suspect]
     Active Substance: LACOSAMIDE
     Indication: OFF LABEL USE
  6. MIDAZOLAM [Suspect]
     Active Substance: MIDAZOLAM HYDROCHLORIDE
     Indication: STATUS EPILEPTICUS
     Dosage: 10 MG, UNKNOWN
     Route: 064
  7. MIDAZOLAM [Suspect]
     Active Substance: MIDAZOLAM HYDROCHLORIDE
     Dosage: 0.6 MILLIGRAM/KILOGRAM, HOURLY
     Route: 064
  8. TOPIRAMATE. [Suspect]
     Active Substance: TOPIRAMATE
     Indication: STATUS EPILEPTICUS
     Dosage: UP TO 600 MG/D
     Route: 064
  9. LACOSAMIDE. [Suspect]
     Active Substance: LACOSAMIDE
     Indication: STATUS EPILEPTICUS
     Dosage: UP TO 600 MG/D
     Route: 064
  10. PROPOFOL. [Suspect]
     Active Substance: PROPOFOL
     Dosage: UP TO 4 MG/KG/H
     Route: 064
  11. METHYLPREDNISOLONE. [Suspect]
     Active Substance: METHYLPREDNISOLONE
     Indication: STATUS EPILEPTICUS
     Dosage: 1000 MILLIGRAM, ONCE DAILY (QD)
     Route: 064

REACTIONS (5)
  - Periventricular haemorrhage neonatal [Unknown]
  - Dyspnoea [Unknown]
  - Premature baby [Unknown]
  - Cyanosis [Unknown]
  - Maternal exposure during pregnancy [Unknown]
